FAERS Safety Report 7051406-6 (Version None)
Quarter: 2010Q4

REPORT INFORMATION
  Report Type: 
  Country: None (occurrence: None)
  Receive Date: 20101014
  Receipt Date: 20100903
  Transmission Date: 20110411
  Serious: Yes (Other)
  Sender: FDA-Public Use
  Company Number: TR-ACCORD-005507

PATIENT
  Age: 62 Year
  Sex: Male

DRUGS (2)
  1. ETOPOSIDE [Suspect]
     Indication: SMALL CELL LUNG CANCER STAGE UNSPECIFIED
     Dosage: 100.00-MG/M2
  2. CISPLATIN [Suspect]
     Indication: SMALL CELL LUNG CANCER STAGE UNSPECIFIED
     Dosage: 80.00-MG/M2

REACTIONS (3)
  - FIBROSIS [None]
  - JAUNDICE [None]
  - SPHINCTER OF ODDI DYSFUNCTION [None]
